FAERS Safety Report 10025922 (Version 2)
Quarter: 2014Q2

REPORT INFORMATION
  Report Type: Report from Study
  Country: US (occurrence: US)
  Receive Date: 20140320
  Receipt Date: 20140417
  Transmission Date: 20141212
  Serious: Yes (Death)
  Sender: FDA-Public Use
  Company Number: US-ACTELION-A-US2014-96405

PATIENT
  Age: 89 Year
  Sex: Male

DRUGS (3)
  1. MACITENTAN [Suspect]
     Indication: PULMONARY ARTERIAL HYPERTENSION
     Dosage: 10 MG QD
     Route: 048
     Dates: start: 20140221
  2. REVATIO [Concomitant]
  3. TYVASO [Concomitant]

REACTIONS (1)
  - Cardiac failure [Fatal]
